FAERS Safety Report 7457905-7 (Version None)
Quarter: 2011Q2

REPORT INFORMATION
  Report Type: 
  Country: None (occurrence: None)
  Receive Date: 20110504
  Receipt Date: 20110503
  Transmission Date: 20111010
  Serious: Yes (Other)
  Sender: FDA-Public Use
  Company Number: KR-PFIZER INC-2011095308

PATIENT
  Age: 72 Year
  Sex: Male

DRUGS (6)
  1. ALFUZOSIN [Concomitant]
  2. NORVASC [Suspect]
     Dosage: 7.5 MG, UNK
     Route: 048
  3. ROXATIDINE ACETATE [Concomitant]
  4. PROSCAR [Concomitant]
  5. NORVASC [Suspect]
     Dosage: 5 MG, UNK
     Route: 048
  6. NORVASC [Suspect]
     Dosage: 10 MG, UNK

REACTIONS (3)
  - BLOOD PRESSURE INADEQUATELY CONTROLLED [None]
  - GASTRITIS [None]
  - HERPES ZOSTER [None]
